FAERS Safety Report 9693406 (Version 2)
Quarter: 2013Q4

REPORT INFORMATION
  Report Type: Spontaneous
  Country: US (occurrence: None)
  Receive Date: 20131114
  Receipt Date: 20131119
  Transmission Date: 20140711
  Serious: Yes (Other)
  Sender: FDA-Public Use
  Company Number: ADR-2013-02070

PATIENT
  Age: 51 Year
  Sex: Male

DRUGS (2)
  1. BACLOFEN [Suspect]
     Indication: PAIN
     Dosage: 219.98 MCG/DAY
  2. DILAUDID [Suspect]
     Indication: PAIN
     Dosage: 4.4 MG/DAY

REACTIONS (10)
  - No therapeutic response [None]
  - Device failure [None]
  - Aneurysm [None]
  - Cyst [None]
  - Gastrointestinal disorder [None]
  - Device alarm issue [None]
  - Implant site mass [None]
  - Drug ineffective [None]
  - Implant site cyst [None]
  - Incision site infection [None]
